FAERS Safety Report 10602007 (Version 1)
Quarter: 2014Q4

REPORT INFORMATION
  Report Type: Spontaneous
  Country: US (occurrence: US)
  Receive Date: 20141124
  Receipt Date: 20141124
  Transmission Date: 20150529
  Serious: No
  Sender: FDA-Public Use
  Company Number: US-EISAI MEDICAL RESEARCH-E7389-04864-SPO-US

PATIENT
  Age: 51 Year
  Sex: Female
  Weight: 58 kg

DRUGS (4)
  1. HALAVEN [Suspect]
     Active Substance: ERIBULIN MESYLATE
     Indication: BREAST CANCER METASTATIC
     Dosage: 1.4 MG/M2
     Route: 041
     Dates: start: 20140220, end: 20140226
  2. ESSIAC [Concomitant]
     Indication: PHYTOTHERAPY
     Dosage: UNKNOWN
     Route: 065
     Dates: start: 201401
  3. EMPOWER [Concomitant]
     Indication: PHYTOTHERAPY
     Dosage: UNKNOWN
     Route: 065
     Dates: start: 201401
  4. HALAVEN [Suspect]
     Active Substance: ERIBULIN MESYLATE
     Dosage: 20% DOSE REDUCED
     Route: 041
     Dates: start: 20140227

REACTIONS (4)
  - Neuropathy peripheral [Not Recovered/Not Resolved]
  - Asthenia [Not Recovered/Not Resolved]
  - Decreased appetite [Not Recovered/Not Resolved]
  - Fatigue [Not Recovered/Not Resolved]

NARRATIVE: CASE EVENT DATE: 20140222
